FAERS Safety Report 8963348 (Version 1)
Quarter: 2012Q4

REPORT INFORMATION
  Report Type: 
  Country: US (occurrence: US)
  Receive Date: 20121213
  Receipt Date: 20121213
  Transmission Date: 20130627
  Serious: Yes (Other)
  Sender: FDA-Public Use
  Company Number: US-PFIZER INC-2012310128

PATIENT
  Age: 33 Year
  Sex: Female
  Weight: 54 kg

DRUGS (2)
  1. DEPO-PROVERA [Suspect]
     Indication: CONTRACEPTION
     Dosage: UNK
     Dates: start: 20120709
  2. AMOXICILLIN [Concomitant]
     Dosage: UNK
     Dates: start: 201211, end: 201212

REACTIONS (3)
  - Menorrhagia [Not Recovered/Not Resolved]
  - Haematocrit decreased [Unknown]
  - Asthenia [Unknown]
